FAERS Safety Report 16942971 (Version 5)
Quarter: 2020Q3

REPORT INFORMATION
  Report Type: Report from Study
  Country: US (occurrence: US)
  Receive Date: 20191021
  Receipt Date: 20200817
  Transmission Date: 20201102
  Serious: Yes (Hospitalization)
  Sender: FDA-Public Use
  Company Number: US-ACTELION-A-US2019-195485

PATIENT
  Age: 55 Year
  Sex: Female
  Weight: 81.18 kg

DRUGS (6)
  1. OXYGEN. [Suspect]
     Active Substance: OXYGEN
     Indication: PRODUCT USED FOR UNKNOWN INDICATION
     Route: 065
  2. VELETRI [Suspect]
     Active Substance: EPOPROSTENOL
     Indication: PULMONARY HYPERTENSION
     Dosage: 7 NG/KG, PER MIN
     Route: 042
  3. COUMADIN [Concomitant]
     Active Substance: WARFARIN SODIUM
  4. OPSUMIT [Concomitant]
     Active Substance: MACITENTAN
     Indication: PULMONARY HYPERTENSION
     Route: 048
  5. ADEMPAS [Concomitant]
     Active Substance: RIOCIGUAT
  6. WARFARIN [Concomitant]
     Active Substance: WARFARIN

REACTIONS (14)
  - Pain in jaw [Unknown]
  - Diarrhoea [Unknown]
  - Myalgia [Unknown]
  - Chest pain [Unknown]
  - Pain [Unknown]
  - Headache [Unknown]
  - Urinary tract infection [Unknown]
  - Dizziness [Unknown]
  - Sinus pain [Unknown]
  - Influenza like illness [Unknown]
  - Surgery [Unknown]
  - Eye pain [Unknown]
  - Arthralgia [Unknown]
  - Malaise [Unknown]

NARRATIVE: CASE EVENT DATE: 201910
